FAERS Safety Report 24257798 (Version 1)
Quarter: 2024Q3

REPORT INFORMATION
  Report Type: Spontaneous
  Country: JP (occurrence: JP)
  Receive Date: 20240828
  Receipt Date: 20240828
  Transmission Date: 20241016
  Serious: Yes (Life-Threatening, Hospitalization, Other)
  Sender: JUBILANT
  Company Number: None

PATIENT
  Age: 23 Year
  Sex: Female

DRUGS (1)
  1. VALSARTAN [Suspect]
     Active Substance: VALSARTAN
     Indication: Product used for unknown indication
     Dosage: 880 MG, TOTAL (22 VALSARTAN 40 MG TABLETS)
     Route: 064

REACTIONS (6)
  - Intentional overdose [Recovered/Resolved]
  - Sedation [Recovered/Resolved]
  - Prescription drug used without a prescription [Recovered/Resolved]
  - Haemorrhage in pregnancy [Recovered/Resolved]
  - Oligohydramnios [Recovered/Resolved]
  - Agitation [Recovered/Resolved]
